FAERS Safety Report 23830688 (Version 2)
Quarter: 2024Q2

REPORT INFORMATION
  Report Type: Report from Study
  Country: US (occurrence: US)
  Receive Date: 20240508
  Receipt Date: 20240511
  Transmission Date: 20240716
  Serious: Yes (Other)
  Sender: FDA-Public Use
  Company Number: US-ABBVIE-5569026

PATIENT
  Sex: Female

DRUGS (30)
  1. VENCLEXTA [Suspect]
     Active Substance: VENETOCLAX
     Indication: Myelodysplastic syndrome
     Dosage: FORM STRENGTH WAS 100 MILLIGRAM.
     Route: 048
  2. VENCLEXTA [Suspect]
     Active Substance: VENETOCLAX
     Indication: Myelodysplastic syndrome
     Dosage: THEN TAKE TWO TABLET(S) BY MOUTH DAILY THEREAFTER.?FORM STRENGTH WAS 100 MILLIGRAM.
     Route: 048
  3. VENCLEXTA [Suspect]
     Active Substance: VENETOCLAX
     Indication: Myelodysplastic syndrome
     Dosage: ON DAY 2?FORM STRENGTH WAS 100 MILLIGRAM, DURATION TEXT: TAKE ONE TABLET BY MOUTH DAILY
     Route: 048
  4. VENCLEXTA [Suspect]
     Active Substance: VENETOCLAX
     Indication: Myelodysplastic syndrome
     Dosage: DAY 1?FORM STRENGTH WAS 100 MILLIGRAM.
     Route: 048
  5. CIPROFLOXACIN [Concomitant]
     Active Substance: CIPROFLOXACIN
     Indication: Product used for unknown indication
     Dosage: 1 PO?FORM STRENGTH: 500 MG
     Route: 048
  6. AMLODIPINE [Concomitant]
     Active Substance: AMLODIPINE BESYLATE
     Indication: Product used for unknown indication
     Dosage: FORM STRENGTH: 5 MG
     Route: 048
  7. NITROGLYCERIN [Concomitant]
     Active Substance: NITROGLYCERIN
     Indication: Product used for unknown indication
     Dosage: TIME INTERVAL: AS NECESSARY: 0.4 MG SUBLINGUAL TABLET PRN?FORM STRENGTH: 0.4 MG
  8. OMEPRAZOLE [Concomitant]
     Active Substance: DONEPEZIL HYDROCHLORIDE\OMEPRAZOLE\OMEPRAZOLE MAGNESIUM
     Indication: Product used for unknown indication
     Dosage: FORM STRENGTH: 40 MG?FORM OF ADMIN. 40 MG CAPSULE ,DELAYED RELEASE
     Route: 048
  9. CEPHALEXIN [Concomitant]
     Active Substance: CEPHALEXIN
     Indication: Product used for unknown indication
     Dosage: TIME INTERVAL: 0.33333333 DAYS: FORM STRENGTH: 500 MG?DOSAGE TEXT  FOR 7 DAYS
  10. OXYCODONE [Concomitant]
     Active Substance: OXYCODONE\OXYCODONE HYDROCHLORIDE
     Indication: Product used for unknown indication
     Dosage: TAKE ONE TABLET PO 30 MIN PRIOR TO BONE MARROW BIOPSY?FORM STRENGTH: 5 MG
     Route: 048
  11. ATIVAN [Concomitant]
     Active Substance: LORAZEPAM
     Indication: Product used for unknown indication
     Dosage: TAKE ONE TABLET PO 30 MIN PRIOR TO BONE MARROW BIOPSY?FORM STRENGTH: 1 MG
     Route: 048
  12. VIDAZA [Concomitant]
     Active Substance: AZACITIDINE
     Indication: Product used for unknown indication
     Dosage: 75MG/M2 SC D1- D5 Q28DAYS LAST TX 12-MAY-2023
     Route: 058
     Dates: start: 20230116, end: 20230512
  13. DACOGEN [Concomitant]
     Active Substance: DECITABINE
     Indication: Product used for unknown indication
     Dosage: 20MG/M2 D1 -D5 Q 28DAYS ,29-DEC-2023
     Dates: start: 20230605
  14. DACOGEN [Concomitant]
     Active Substance: DECITABINE
     Indication: Product used for unknown indication
     Dosage: 20MG/M2 D1 -D5 Q 28DAYS LAST TX 21-OCT-2023, 05-JUL-2023, 29-DEC-2023?LAST ADMIN DATE WAS 2023
     Dates: start: 20230530
  15. ALLOPURINOL [Concomitant]
     Active Substance: ALLOPURINOL
     Indication: Product used for unknown indication
     Dosage: FORM STRENGTH: 300 MG? START DATE TEXT: 1 P.O. Q. DAY
     Route: 048
  16. OCUVITE [Concomitant]
     Active Substance: VITAMINS
     Indication: Product used for unknown indication
     Dosage: FORM OF ADMIN. TEYE HEALTH 50 MG-15 UNIT-4.5 MG-2.5 MG CHEWABLE TABLET
     Route: 048
  17. NYSTATIN [Concomitant]
     Active Substance: NYSTATIN
     Indication: Product used for unknown indication
     Dosage: SWISH AND SPIT EVERY 4-6 HR?100000 UNIT/ML SUSPENSION
  18. NOXAFIL [Concomitant]
     Active Substance: POSACONAZOLE
     Indication: Product used for unknown indication
     Dosage: 3 P.O. TWICE A DAY (BID)?FORM STRENGTH: 100 MG
     Route: 048
  19. HEPARIN [Concomitant]
     Active Substance: HEPARIN SODIUM
     Indication: Product used for unknown indication
     Dosage: LOCK FLUSH (PORCINE) (PF) 100 UNIT/ML INTRAVENOUS SYRINGE FLUSH EACH LUMEN DAILY?FORM STRENGTH: 1...
  20. ROCEPHIN [Concomitant]
     Active Substance: CEFTRIAXONE SODIUM
     Indication: Product used for unknown indication
     Dosage: LAST TX-16-NOV-2023?FORM STRENGTH: 1 GRAM
     Dates: start: 20231113, end: 20231116
  21. ROCEPHIN [Concomitant]
     Active Substance: CEFTRIAXONE SODIUM
     Indication: Product used for unknown indication
     Dosage: LAST TX-10-NOV-2023?FORM STRENGTH: 1 GRAM
     Dates: start: 20231110, end: 20231110
  22. POSACONAZOLE [Concomitant]
     Active Substance: POSACONAZOLE
     Indication: Product used for unknown indication
     Dosage: 3 TABLETS PO DAILY/FORM STRENGTH: 100 MG
     Route: 048
  23. LEVOTHYROXINE [Concomitant]
     Active Substance: LEVOTHYROXINE\LEVOTHYROXINE SODIUM
     Indication: Product used for unknown indication
     Dosage: FORM STRENGTH: 75 MICROGRAM
     Route: 048
  24. ROSUVASTATIN [Concomitant]
     Active Substance: ROSUVASTATIN
     Indication: Product used for unknown indication
     Dosage: FORM STRENGTH: 20 MG
     Route: 048
  25. ACYCLOVIR [Concomitant]
     Active Substance: ACYCLOVIR
     Indication: Product used for unknown indication
     Dosage: FORM STRENGTH: 400 MG
  26. DICYCLOMINE [Concomitant]
     Active Substance: DICYCLOMINE HYDROCHLORIDE
     Indication: Product used for unknown indication
     Dosage: FORM STRENGTH: 20 MG
  27. ELIQUIS [Concomitant]
     Active Substance: APIXABAN
     Indication: Product used for unknown indication
     Dosage: 2 TABLETS BID 7 DAYS. FOLLOWED BY ONE TABLET BID?FORM STRENGTH: 5 MG
  28. SODIUM CHLORIDE [Concomitant]
     Active Substance: SODIUM CHLORIDE
     Indication: Product used for unknown indication
     Dosage: FLUSH EACH LUMEN WITH 10 ML DAILY
  29. RANOLAZINE [Concomitant]
     Active Substance: RANOLAZINE
     Indication: Product used for unknown indication
     Dosage: FORM STRENGTH: 500 MG
     Route: 048
  30. METOPROLOL SUCCINATE [Concomitant]
     Active Substance: METOPROLOL SUCCINATE
     Indication: Product used for unknown indication
     Dosage: FORM STRENGTH: 25 MG
     Route: 048

REACTIONS (3)
  - Macular degeneration [Not Recovered/Not Resolved]
  - Product dispensing error [Unknown]
  - Off label use [Unknown]
